FAERS Safety Report 5639844-7 (Version None)
Quarter: 2008Q1

REPORT INFORMATION
  Report Type: 
  Country: None (occurrence: None)
  Receive Date: 20080225
  Receipt Date: 20080213
  Transmission Date: 20080703
  Serious: Yes (Hospitalization)
  Sender: FDA-Public Use
  Company Number: B0507915A

PATIENT
  Age: 18 Year
  Sex: Female

DRUGS (1)
  1. MALARONE [Suspect]
     Indication: MALARIA PROPHYLAXIS
     Dosage: 1 TABLET PER DAY ORAL
     Route: 048
     Dates: start: 20080101

REACTIONS (2)
  - DRUG INEFFECTIVE [None]
  - MALARIA [None]
